APPROVED DRUG PRODUCT: DOXYCYCLINE
Active Ingredient: DOXYCYCLINE
Strength: EQ 25MG BASE/5ML
Dosage Form/Route: FOR SUSPENSION;ORAL
Application: A201678 | Product #001 | TE Code: AB
Applicant: LUPIN LTD
Approved: Mar 18, 2013 | RLD: No | RS: Yes | Type: RX